FAERS Safety Report 5885014-7 (Version None)
Quarter: 2008Q3

REPORT INFORMATION
  Report Type: 
  Country: None (occurrence: None)
  Receive Date: 20080916
  Receipt Date: 20080905
  Transmission Date: 20090109
  Serious: Yes (Hospitalization)
  Sender: FDA-Public Use
  Company Number: US-JNJFOC-20080901679

PATIENT
  Sex: Female
  Weight: 79.38 kg

DRUGS (13)
  1. REMICADE [Suspect]
     Route: 042
  2. REMICADE [Suspect]
     Route: 042
  3. REMICADE [Suspect]
     Indication: RHEUMATOID ARTHRITIS
     Route: 042
  4. LIMBREL [Concomitant]
     Indication: ARTHRALGIA
  5. PREDNISONE TAB [Concomitant]
     Indication: RHEUMATOID ARTHRITIS
  6. METHOTREXATE [Concomitant]
     Indication: RHEUMATOID ARTHRITIS
  7. FOLIC ACID [Concomitant]
     Indication: PROPHYLAXIS
  8. ATENOLOL [Concomitant]
     Indication: HEART RATE
  9. VALTREX [Concomitant]
     Indication: PROPHYLAXIS
  10. LIPITOR [Concomitant]
     Indication: BLOOD CHOLESTEROL
  11. NEXIUM [Concomitant]
     Indication: GASTROOESOPHAGEAL REFLUX DISEASE
  12. ARTHROTEC [Concomitant]
     Indication: INFLAMMATION
  13. DARVOCET-N 100 [Concomitant]
     Indication: PAIN

REACTIONS (2)
  - PNEUMONIA CRYPTOCOCCAL [None]
  - SYSTEMIC MYCOSIS [None]
